FAERS Safety Report 8355220-0 (Version None)
Quarter: 2012Q2

REPORT INFORMATION
  Report Type: 
  Country: None (occurrence: None)
  Receive Date: 20120511
  Receipt Date: 20120430
  Transmission Date: 20120825
  Serious: Yes (Hospitalization, Other)
  Sender: FDA-Public Use
  Company Number: US-ELI_LILLY_AND_COMPANY-US201102005162

PATIENT
  Sex: Female
  Weight: 60 kg

DRUGS (11)
  1. MAGNESIUM [Concomitant]
     Dosage: UNK, QD
  2. METOPROLOL TARTRATE [Concomitant]
     Dosage: 25 MG, UNK
  3. FORTEO [Suspect]
     Dosage: 20 UG, QD
     Route: 058
     Dates: end: 20120113
  4. TYLENOL (CAPLET) [Concomitant]
     Dosage: UNK, PRN
  5. MULTI-VITAMIN [Concomitant]
     Dosage: UNK, QD
  6. FORTEO [Suspect]
     Indication: OSTEOPOROSIS
     Dosage: 20 UG, QD
     Route: 058
     Dates: start: 20100601
  7. LIDODERM [Concomitant]
  8. WARFARIN SODIUM [Concomitant]
     Dosage: UNK, QD
  9. VITAMIN D [Concomitant]
     Dosage: 1000 IU, QD
  10. FORTEO [Suspect]
     Dosage: 20 UG, QD
     Route: 058
  11. FLECAINIDE ACETATE [Concomitant]
     Dosage: 50 MG, BID

REACTIONS (2)
  - LOCALISED INFECTION [None]
  - DRUG DOSE OMISSION [None]
